FAERS Safety Report 8977579 (Version 2)
Quarter: 2013Q1

REPORT INFORMATION
  Report Type: Spontaneous
  Country: US (occurrence: US)
  Receive Date: 20121220
  Receipt Date: 20130114
  Transmission Date: 20140127
  Serious: Yes (Death)
  Sender: FDA-Public Use
  Company Number: US-ELI_LILLY_AND_COMPANY-US201212003968

PATIENT
  Age: 79 Year
  Sex: Male

DRUGS (1)
  1. FORTEO [Suspect]

REACTIONS (2)
  - Death [Fatal]
  - Dizziness [Unknown]
